FAERS Safety Report 12741341 (Version 1)
Quarter: 2016Q3

REPORT INFORMATION
  Report Type: Spontaneous
  Country: US (occurrence: US)
  Receive Date: 20160914
  Receipt Date: 20160914
  Transmission Date: 20161109
  Serious: No
  Sender: FDA-Public Use
  Company Number: US-PFIZER INC-2016425627

PATIENT
  Age: 61 Year
  Sex: Female

DRUGS (1)
  1. ZITHROMAX [Suspect]
     Active Substance: AZITHROMYCIN DIHYDRATE
     Indication: COUGH
     Dosage: UNK

REACTIONS (5)
  - Chills [Unknown]
  - Hyperhidrosis [Unknown]
  - Condition aggravated [Unknown]
  - Drug ineffective [Unknown]
  - Cough [Unknown]
